FAERS Safety Report 5538362-4 (Version None)
Quarter: 2007Q4

REPORT INFORMATION
  Report Type: 
  Country: None (occurrence: None)
  Receive Date: 20071205
  Receipt Date: 20071123
  Transmission Date: 20080405
  Serious: Yes (Hospitalization)
  Sender: FDA-Public Use
  Company Number: 2006SS000001

PATIENT
  Age: 10 Year
  Sex: Male
  Weight: 23.4 kg

DRUGS (7)
  1. MYOBLOC [Suspect]
     Indication: MUSCLE SPASTICITY
     Dosage: 19000 U; IM
     Dates: start: 20050721, end: 20050721
  2. MYOBLOC [Suspect]
     Indication: MUSCLE SPASTICITY
     Dosage: 19000 U; IM
     Dates: start: 20051128, end: 20051128
  3. BACLOFEN [Concomitant]
  4. ZANAFLEX [Concomitant]
  5. VALIUM [Concomitant]
  6. PREVACID [Concomitant]
  7. ZANAFLEX [Concomitant]

REACTIONS (8)
  - DIPLEGIA [None]
  - DYSPNOEA [None]
  - HYPOREFLEXIA [None]
  - HYPOTONIA [None]
  - MUSCULAR WEAKNESS [None]
  - OFF LABEL USE [None]
  - PRODUCTIVE COUGH [None]
  - SLEEP APNOEA SYNDROME [None]
